FAERS Safety Report 20220385 (Version 1)
Quarter: 2021Q4

REPORT INFORMATION
  Report Type: Spontaneous
  Country: DE (occurrence: DE)
  Receive Date: 20211223
  Receipt Date: 20211223
  Transmission Date: 20220303
  Serious: Yes (Hospitalization, Other)
  Sender: FDA-Public Use
  Company Number: DE-ADRED-05259-02

PATIENT
  Age: 51 Year
  Sex: Male
  Weight: 112 kg

DRUGS (18)
  1. MIRTAZAPINE [Suspect]
     Active Substance: MIRTAZAPINE
     Indication: Product used for unknown indication
     Dosage: UNK(15 MG, 0-0-0-0.5, TABLET)
     Route: 048
  2. MELATONIN [Suspect]
     Active Substance: MELATONIN
     Indication: Product used for unknown indication
     Dosage: UNK(SELF MEDICATION)
     Route: 065
  3. HYDROCHLOROTHIAZIDE\RAMIPRIL [Suspect]
     Active Substance: HYDROCHLOROTHIAZIDE\RAMIPRIL
     Indication: Product used for unknown indication
     Dosage: UNK(25 | 5 MG, 1-0-0-0, TABLETS)
     Route: 048
  4. SIMVASTATIN [Suspect]
     Active Substance: SIMVASTATIN
     Indication: Product used for unknown indication
     Dosage: UNK(40 MG, 0-0-1-0, TABLETS)
     Route: 048
  5. ARTICHOKE [Suspect]
     Active Substance: ARTICHOKE
     Indication: Product used for unknown indication
     Dosage: UNK (SELF-MEDICATION)
     Route: 065
  6. PROMETHAZINE [Suspect]
     Active Substance: PROMETHAZINE HYDROCHLORIDE
     Indication: Product used for unknown indication
     Dosage: UNK (20 MG / ML, IF NECESSARY, DROPS)
     Route: 048
  7. ASPIRIN [Concomitant]
     Active Substance: ASPIRIN
     Indication: Product used for unknown indication
     Dosage: UNK (100 MG, 0-1-0-0, TABLETS)
     Route: 048
  8. DIHYDRALAZINE [Concomitant]
     Active Substance: DIHYDRALAZINE
     Indication: Product used for unknown indication
     Dosage: UNK (25 MG, 1-0-1-0, TABLETS)
     Route: 048
  9. ENOXAPARIN [Concomitant]
     Active Substance: ENOXAPARIN
     Indication: Product used for unknown indication
     Dosage: UNK (40 MG / 0.4ML, 0-0-1-0, PRE-FILLED SYRINGES)
     Route: 058
  10. NITROGLYCERIN [Concomitant]
     Active Substance: NITROGLYCERIN
     Indication: Product used for unknown indication
     Dosage: UNK (0.4 MG / STROKE, IF NECESSARY, SOLUTION)
     Route: 060
  11. IBUPROFEN [Concomitant]
     Active Substance: IBUPROFEN
     Indication: Product used for unknown indication
     Dosage: UNK (800 MG, IF NECESSARY, TABLETS)
     Route: 048
  12. LERCANIDIPINE [Concomitant]
     Active Substance: LERCANIDIPINE
     Indication: Product used for unknown indication
     Dosage: UNK (10 MG, 1-0-1-0, TABLETS)
     Route: 048
  13. LORAZEPAM [Concomitant]
     Active Substance: LORAZEPAM
     Indication: Product used for unknown indication
     Dosage: UNK (1 MG, 1-1-1-0, ORODISPERSIBLE TABLETS)
     Route: 060
  14. Mariendistel [Concomitant]
     Indication: Product used for unknown indication
     Dosage: UNK (SELF-MEDICATION)
     Route: 065
  15. METOPROLOL [Concomitant]
     Active Substance: METOPROLOL
     Indication: Product used for unknown indication
     Dosage: UNK (95 MG, 1-0-1-0, SUSTAINED-RELEASE TABLETS)
     Route: 048
  16. METFORMIN [Concomitant]
     Active Substance: METFORMIN HYDROCHLORIDE
     Indication: Product used for unknown indication
     Dosage: UNK (1000 MG, 1-0-1-0, TABLETS)
     Route: 048
  17. RAMIPRIL [Concomitant]
     Active Substance: RAMIPRIL
     Indication: Product used for unknown indication
     Dosage: UNK (5 MG, 1-0-1-0, TABLETS)
     Route: 048
  18. VICTOZA [Concomitant]
     Active Substance: LIRAGLUTIDE
     Indication: Product used for unknown indication
     Dosage: UNK (6 MG / ML, 0-0-0.6-0, PRE-FILLED SYRINGES)
     Route: 058

REACTIONS (6)
  - Gallbladder enlargement [Unknown]
  - Cholelithiasis [Unknown]
  - Abdominal pain upper [Unknown]
  - Contraindicated product administered [Unknown]
  - Labelled drug-drug interaction medication error [Unknown]
  - Product monitoring error [Unknown]
